FAERS Safety Report 16860147 (Version 1)
Quarter: 2019Q3

REPORT INFORMATION
  Report Type: Spontaneous
  Country: US (occurrence: US)
  Receive Date: 20190927
  Receipt Date: 20190927
  Transmission Date: 20191005
  Serious: No
  Sender: FDA-Public Use
  Company Number: US-CELGENEUS-USA-20190906918

PATIENT
  Sex: Male

DRUGS (4)
  1. THALOMID [Suspect]
     Active Substance: THALIDOMIDE
     Dosage: 150 MILLIGRAM
     Route: 048
     Dates: start: 201907
  2. THALOMID [Suspect]
     Active Substance: THALIDOMIDE
     Indication: PRODUCT USE ISSUE
     Dosage: 150-200 MILLIGRAM
     Route: 048
     Dates: start: 201904
  3. THALOMID [Suspect]
     Active Substance: THALIDOMIDE
     Dosage: REDUCED DOSE
     Route: 048
     Dates: start: 2019
  4. THALOMID [Suspect]
     Active Substance: THALIDOMIDE
     Indication: MALIGNANT NERVOUS SYSTEM NEOPLASM
     Dosage: 100 MILLIGRAM
     Route: 048
     Dates: start: 201903

REACTIONS (1)
  - Laboratory test abnormal [Unknown]

NARRATIVE: CASE EVENT DATE: 2019
